FAERS Safety Report 6640571-8 (Version None)
Quarter: 2010Q1

REPORT INFORMATION
  Report Type: 
  Country: None (occurrence: None)
  Receive Date: 20100318
  Receipt Date: 20100311
  Transmission Date: 20100710
  Serious: Yes (Hospitalization)
  Sender: FDA-Public Use
  Company Number: JP-MERCK-1002USA02854

PATIENT
  Age: 70 Year
  Sex: Male
  Weight: 70 kg

DRUGS (7)
  1. JANUVIA [Suspect]
     Indication: HYPERGLYCAEMIA
     Route: 048
     Dates: start: 20100107, end: 20100211
  2. AMARYL [Concomitant]
     Route: 048
     Dates: start: 20080110, end: 20100310
  3. AMARYL [Concomitant]
     Route: 048
     Dates: start: 20000511, end: 20100310
  4. DOXAZOSIN MESYLATE [Concomitant]
     Route: 048
  5. NORVASC [Concomitant]
     Route: 048
     Dates: start: 20010616, end: 20100310
  6. LIPITOR [Concomitant]
     Route: 048
     Dates: start: 20040511, end: 20100310
  7. ALDACTONE [Concomitant]
     Route: 048
     Dates: start: 19971013, end: 20100310

REACTIONS (1)
  - ATRIAL FIBRILLATION [None]
